FAERS Safety Report 9458461 (Version 1)
Quarter: 2013Q3

REPORT INFORMATION
  Report Type: Spontaneous
  Country: IT (occurrence: IT)
  Receive Date: 20130814
  Receipt Date: 20130814
  Transmission Date: 20140515
  Serious: Yes (Other)
  Sender: FDA-Public Use
  Company Number: IT-ACTAVIS-2013-14342

PATIENT
  Sex: Female

DRUGS (7)
  1. QUETIAPINE FUMARATE [Suspect]
     Indication: BEHAVIOURAL AND PSYCHIATRIC SYMPTOMS OF DEMENTIA
     Dosage: 50 MG, DAILY
     Route: 048
     Dates: start: 20130411, end: 20130717
  2. DAPAROX [Concomitant]
     Indication: PRODUCT USED FOR UNKNOWN INDICATION
     Dosage: UNK
     Route: 065
     Dates: start: 20121213, end: 20130724
  3. CONGESCOR [Concomitant]
     Indication: PRODUCT USED FOR UNKNOWN INDICATION
     Route: 065
  4. LASIX                              /00032601/ [Concomitant]
     Indication: MYOCARDIAL ISCHAEMIA
     Dosage: 25 MG, UNK
     Route: 065
  5. MONOKET [Concomitant]
     Indication: MYOCARDIAL ISCHAEMIA
     Route: 065
  6. PEPTAZOL                           /01159001/ [Concomitant]
     Indication: GASTRITIS EROSIVE
     Route: 065
  7. PRADAXA [Concomitant]
     Indication: CORONARY ARTERY STENOSIS
     Route: 065

REACTIONS (2)
  - Parkinsonism [Not Recovered/Not Resolved]
  - Off label use [Not Recovered/Not Resolved]
